FAERS Safety Report 15522508 (Version 1)
Quarter: 2018Q4

REPORT INFORMATION
  Report Type: Spontaneous
  Country: US (occurrence: US)
  Receive Date: 20181019
  Receipt Date: 20181019
  Transmission Date: 20190205
  Serious: Yes (Hospitalization)
  Sender: FDA-Public Use
  Company Number: None

PATIENT
  Sex: Female

DRUGS (8)
  1. GLATIRAMER [Suspect]
     Active Substance: GLATIRAMER
     Indication: MULTIPLE SCLEROSIS
     Dosage: ?          OTHER FREQUENCY:TIW;?
     Route: 058
     Dates: start: 20171227
  2. IBU [Concomitant]
     Active Substance: IBUPROFEN
  3. ORPHENADRINE [Concomitant]
     Active Substance: ORPHENADRINE
  4. OXYCODONE [Concomitant]
     Active Substance: OXYCODONE
  5. SUCRALFATE. [Concomitant]
     Active Substance: SUCRALFATE
  6. ESCITALOPRAM [Concomitant]
     Active Substance: ESCITALOPRAM OXALATE
  7. DIVALPROEX [Concomitant]
     Active Substance: DIVALPROEX SODIUM
  8. CLONIDINE. [Concomitant]
     Active Substance: CLONIDINE

REACTIONS (2)
  - Pneumonia [None]
  - Therapy cessation [None]
